FAERS Safety Report 9936839 (Version 1)
Quarter: 2014Q1

REPORT INFORMATION
  Report Type: Spontaneous
  Country: MX (occurrence: None)
  Receive Date: 20140110
  Receipt Date: 20140110
  Transmission Date: 20141002
  Serious: Yes (Life-Threatening, Hospitalization)
  Sender: FDA-Public Use
  Company Number: 2013-01664

PATIENT
  Age: 22 Year
  Sex: Female

DRUGS (3)
  1. LEVETIRACETAM (UNKNOWN) (LEVETIRACETAM) [Suspect]
     Indication: CONVULSION
     Dosage: 1000 MG (500 MG, 2 IN 1 D), UNKNOWN
  2. LACOSAMIDE [Suspect]
     Indication: CONVULSION
     Dosage: 200 MG (100 MG, 2 IN 1 D), UNKNOWN
  3. ALPRAZOLAM (UNKNOWN) [Concomitant]

REACTIONS (5)
  - Drug interaction [None]
  - Liver injury [None]
  - Dizziness [None]
  - Status epilepticus [None]
  - Syncope [None]
